FAERS Safety Report 23640576 (Version 2)
Quarter: 2025Q1

REPORT INFORMATION
  Report Type: Spontaneous
  Country: CA (occurrence: CA)
  Receive Date: 20240318
  Receipt Date: 20250311
  Transmission Date: 20250409
  Serious: Yes (Other)
  Sender: SANDOZ
  Company Number: CA-SANDOZ-SDZ2024CA028413

PATIENT
  Age: 9 Month
  Sex: Male

DRUGS (7)
  1. SOMATROPIN [Suspect]
     Active Substance: SOMATROPIN
     Indication: Prader-Willi syndrome
     Route: 058
  2. SOMATROPIN [Suspect]
     Active Substance: SOMATROPIN
     Route: 058
  3. SOMATROPIN [Suspect]
     Active Substance: SOMATROPIN
     Route: 058
  4. SOMATROPIN [Suspect]
     Active Substance: SOMATROPIN
     Route: 058
  5. IRON [Concomitant]
     Active Substance: IRON
     Indication: Product used for unknown indication
     Route: 065
  6. OXYGEN [Concomitant]
     Active Substance: OXYGEN
     Indication: Product used for unknown indication
     Route: 065
  7. SYNTHROID [Concomitant]
     Active Substance: LEVOTHYROXINE SODIUM
     Indication: Central hypothyroidism
     Dosage: 25 MG, QD
     Route: 065

REACTIONS (5)
  - Feeding disorder [Unknown]
  - Bruxism [Not Recovered/Not Resolved]
  - Disease progression [Not Recovered/Not Resolved]
  - Scoliosis [Not Recovered/Not Resolved]
  - Headache [Not Recovered/Not Resolved]
